FAERS Safety Report 12265300 (Version 4)
Quarter: 2016Q3

REPORT INFORMATION
  Report Type: Spontaneous
  Country: DE (occurrence: DE)
  Receive Date: 20160413
  Receipt Date: 20160726
  Transmission Date: 20161109
  Serious: Yes (Hospitalization)
  Sender: FDA-Public Use
  Company Number: DE-BAYER-2016-070532

PATIENT
  Age: 49 Year
  Sex: Female

DRUGS (4)
  1. JAYDESS [Suspect]
     Active Substance: LEVONORGESTREL
     Indication: CONTRACEPTION
     Dosage: 14 MCG/24HR, CONT
     Route: 015
     Dates: start: 20160222, end: 20160408
  2. L-THYROXIN [Concomitant]
     Active Substance: LEVOTHYROXINE SODIUM
  3. ASS 100 [Concomitant]
     Active Substance: ASPIRIN
     Indication: THROMBOPHLEBITIS
     Dosage: UNK
     Dates: start: 201512
  4. RAMIPRIL. [Concomitant]
     Active Substance: RAMIPRIL

REACTIONS (3)
  - Dysmenorrhoea [None]
  - Face oedema [Recovered/Resolved]
  - Hypomenorrhoea [None]

NARRATIVE: CASE EVENT DATE: 2016
